FAERS Safety Report 17190133 (Version 1)
Quarter: 2019Q4

REPORT INFORMATION
  Report Type: Spontaneous
  Country: ES (occurrence: ES)
  Receive Date: 20191223
  Receipt Date: 20191223
  Transmission Date: 20200122
  Serious: Yes (Other)
  Sender: FDA-Public Use
  Company Number: ES-SUN PHARMACEUTICAL INDUSTRIES LTD-2019RR-231541

PATIENT
  Age: 71 Year
  Sex: Male

DRUGS (2)
  1. HYDROCHLOROTHIAZIDE/RAMIPRIL [Suspect]
     Active Substance: HYDROCHLOROTHIAZIDE\RAMIPRIL
     Indication: HYPERTENSION
     Dosage: 1 DOSAGE FORM, DAILY
     Dates: start: 20190304, end: 20191129
  2. XIGDUO 5 MG/850 MG COMPRIMIDOS RECUBIERTOS CON PELICULA, 56 COMPRIM... [Concomitant]
     Indication: PRODUCT USED FOR UNKNOWN INDICATION
     Dosage: 1 DOSAGE FORM, DAILY
     Dates: start: 20191002

REACTIONS (3)
  - Swollen tongue [Unknown]
  - Angioedema [Unknown]
  - Pruritus [Unknown]

NARRATIVE: CASE EVENT DATE: 20191129
